FAERS Safety Report 5219581-3 (Version None)
Quarter: 2007Q1

REPORT INFORMATION
  Report Type: 
  Country: None (occurrence: None)
  Receive Date: 20070125
  Receipt Date: 20070110
  Transmission Date: 20070707
  Serious: Yes (Other)
  Sender: FDA-Public Use
  Company Number: US-SHR-US-2006-039020

PATIENT
  Age: 58 Year
  Sex: Female
  Weight: 61 kg

DRUGS (1)
  1. BETASERON [Suspect]
     Dosage: 8 MIU, EVERY 2D
     Route: 058
     Dates: start: 20060907, end: 20061128

REACTIONS (2)
  - BLOOD DISORDER [None]
  - SPLENOMEGALY [None]
